FAERS Safety Report 9122386 (Version 1)
Quarter: 2013Q1

REPORT INFORMATION
  Report Type: Report from Study
  Country: CA (occurrence: CA)
  Receive Date: 20130114
  Receipt Date: 20130114
  Transmission Date: 20140127
  Serious: Yes (Other)
  Sender: FDA-Public Use
  Company Number: CA-JNJFOC-20130104321

PATIENT
  Sex: Male
  Weight: 107.05 kg

DRUGS (3)
  1. REMICADE [Suspect]
     Indication: CROHN^S DISEASE
     Route: 042
  2. REMICADE [Suspect]
     Indication: CROHN^S DISEASE
     Route: 042
     Dates: start: 201208
  3. IMURAN [Concomitant]
     Dosage: 3, 50 MG PILLS
     Route: 065

REACTIONS (4)
  - Arthritis [Unknown]
  - Body height decreased [Unknown]
  - Crohn^s disease [Unknown]
  - Drug effect decreased [Unknown]
